FAERS Safety Report 5728985-1 (Version None)
Quarter: 2008Q2

REPORT INFORMATION
  Report Type: 
  Country: None (occurrence: None)
  Receive Date: 20080501
  Receipt Date: 20080422
  Transmission Date: 20081010
  Serious: Yes (Death, Hospitalization)
  Sender: FDA-Public Use
  Company Number: 2008BI003334

PATIENT
  Age: 43 Year
  Sex: Female

DRUGS (1)
  1. AVONEX [Suspect]
     Indication: MULTIPLE SCLEROSIS
     Dosage: 30 UG; QW; IM
     Route: 030
     Dates: start: 20070901, end: 20080124

REACTIONS (3)
  - COMA [None]
  - RESPIRATORY FAILURE [None]
  - STATUS EPILEPTICUS [None]
